FAERS Safety Report 16068458 (Version 1)
Quarter: 2019Q1

REPORT INFORMATION
  Report Type: Spontaneous
  Country: US (occurrence: US)
  Receive Date: 20190313
  Receipt Date: 20190313
  Transmission Date: 20190418
  Serious: No
  Sender: FDA-Public Use
  Company Number: US-TAKEDA-2019TUS012165

PATIENT
  Sex: Male

DRUGS (2)
  1. ULORIC [Suspect]
     Active Substance: FEBUXOSTAT
     Indication: BLOOD URIC ACID INCREASED
     Dosage: 80 MILLIGRAM, QD
     Route: 065
  2. ULORIC [Suspect]
     Active Substance: FEBUXOSTAT
     Indication: GOUT

REACTIONS (1)
  - Cardiovascular disorder [Unknown]
